FAERS Safety Report 6704387-6 (Version None)
Quarter: 2010Q2

REPORT INFORMATION
  Report Type: 
  Country: None (occurrence: None)
  Receive Date: 20100430
  Receipt Date: 20100426
  Transmission Date: 20101027
  Serious: Yes (Death)
  Sender: FDA-Public Use
  Company Number: JP-ELI_LILLY_AND_COMPANY-JP201004004152

PATIENT
  Age: 64 Year
  Sex: Male
  Weight: 62.4 kg

DRUGS (18)
  1. TADALAFIL [Suspect]
     Indication: PULMONARY ARTERIAL HYPERTENSION
     Dosage: 40 MG, DAILY (1/D)
     Route: 048
     Dates: start: 20100331
  2. PREDNISOLONE [Concomitant]
     Indication: INTERSTITIAL LUNG DISEASE
     Dosage: 10 MG, DAILY (1/D)
     Route: 048
  3. COTRIM [Concomitant]
     Indication: PROPHYLAXIS
     Dosage: 1 D/F, DAILY (1/D)
     Route: 048
  4. OMEPRAL [Concomitant]
     Indication: PROPHYLAXIS
     Dosage: 20 MG, DAILY (1/D)
     Route: 048
  5. AMLODIPINE [Concomitant]
     Indication: PROPHYLAXIS
     Dosage: 5 MG, DAILY (1/D)
     Route: 048
  6. BENET /JPN/ [Concomitant]
     Indication: PROPHYLAXIS
     Dosage: 17.5 MG, DAILY (1/D)
     Route: 048
  7. MEDICON [Concomitant]
     Indication: INTERSTITIAL LUNG DISEASE
     Dosage: 90 MG, DAILY (1/D)
     Route: 048
  8. CYCLOSPORINE [Concomitant]
     Indication: INTERSTITIAL LUNG DISEASE
     Dosage: 100 MG, DAILY (1/D)
     Route: 048
  9. ITRIZOLE [Concomitant]
     Indication: PROPHYLAXIS
     Dosage: 20 ML, DAILY (1/D)
     Route: 048
  10. ALESION [Concomitant]
     Indication: PROPHYLAXIS
     Dosage: 20 MG, DAILY (1/D)
     Route: 048
  11. VASOLAN [Concomitant]
     Indication: ANGINA PECTORIS
     Dosage: 40 MG, DAILY (1/D)
     Route: 048
  12. LASIX [Concomitant]
     Indication: PROPHYLAXIS
     Dosage: 10 MG, DAILY (1/D)
     Route: 048
     Dates: start: 20100331
  13. ROCORNAL [Concomitant]
     Indication: ANGINA PECTORIS
     Dosage: 300 MG, DAILY (1/D)
     Route: 048
     Dates: start: 20100403
  14. NITROGLYCERIN [Concomitant]
     Indication: ANGINA PECTORIS
     Dosage: 27 MG, DAILY (1/D)
     Route: 062
     Dates: start: 20100403
  15. SOLU-MEDROL [Concomitant]
     Indication: INTERSTITIAL LUNG DISEASE
     Dosage: 1 G, DAILY (1/D)
     Route: 042
     Dates: start: 20100404, end: 20100407
  16. ZOSYN [Concomitant]
     Indication: INTERSTITIAL LUNG DISEASE
     Dosage: 4.5 G, DAILY (1/D)
     Route: 042
     Dates: start: 20100404, end: 20100407
  17. CIPROXAN-I.V. /JPN/ [Concomitant]
     Indication: INTERSTITIAL LUNG DISEASE
     Dosage: 200 MG, DAILY (1/D)
     Route: 042
     Dates: start: 20100404, end: 20100405
  18. VASOLAN [Concomitant]
     Dosage: 40 MG, DAILY (1/D)
     Route: 042
     Dates: start: 20100404, end: 20100404

REACTIONS (1)
  - PULMONARY ARTERIAL HYPERTENSION [None]
